FAERS Safety Report 24031425 (Version 1)
Quarter: 2024Q2

REPORT INFORMATION
  Report Type: Spontaneous
  Country: PL (occurrence: PL)
  Receive Date: 20240629
  Receipt Date: 20240629
  Transmission Date: 20240716
  Serious: Yes (Other)
  Sender: FDA-Public Use
  Company Number: None

PATIENT
  Sex: Female

DRUGS (1)
  1. INSULIN LISPRO [Suspect]
     Active Substance: INSULIN LISPRO
     Indication: Diabetes mellitus
     Dosage: TAKEN FOR 3 DAYS; ONGOING THERAPY

REACTIONS (3)
  - Heart rate increased [Unknown]
  - Hyperhidrosis [Unknown]
  - Dyspnoea [Unknown]
